FAERS Safety Report 7003766-X (Version None)
Quarter: 2010Q3

REPORT INFORMATION
  Report Type: 
  Country: None (occurrence: None)
  Receive Date: 20100920
  Receipt Date: 20100112
  Transmission Date: 20110219
  Serious: No
  Sender: FDA-Public Use
  Company Number: US-WYE-H12314409

PATIENT
  Age: 39 Year
  Sex: Female
  Weight: 59.02 kg

DRUGS (3)
  1. PRISTIQ [Suspect]
     Indication: BONE PAIN
     Route: 048
     Dates: start: 20091016
  2. PRISTIQ [Suspect]
     Indication: MYALGIA
  3. SAVELLA [Concomitant]

REACTIONS (2)
  - BLOOD GLUCOSE INCREASED [None]
  - MIGRAINE [None]
